FAERS Safety Report 5729855-5 (Version None)
Quarter: 2008Q2

REPORT INFORMATION
  Report Type: 
  Country: None (occurrence: None)
  Receive Date: 20080502
  Receipt Date: 20080424
  Transmission Date: 20081010
  Serious: Yes (Other)
  Sender: FDA-Public Use
  Company Number: 2008010442

PATIENT
  Age: 7 Year
  Sex: Female
  Weight: 25.4014 kg

DRUGS (1)
  1. COOL MINT LISTERINE POCKETMIST (NO ACTIVE INGREDIENT) [Suspect]
     Dosage: ONE SPRAY ONCE, OPHTHALMIC
     Route: 047
     Dates: start: 20080424, end: 20080424

REACTIONS (4)
  - ACCIDENTAL EXPOSURE [None]
  - CRYING [None]
  - EYE IRRITATION [None]
  - OCULAR HYPERAEMIA [None]
